FAERS Safety Report 21260491 (Version 2)
Quarter: 2022Q3

REPORT INFORMATION
  Report Type: Spontaneous
  Country: LU (occurrence: LU)
  Receive Date: 20220826
  Receipt Date: 20220902
  Transmission Date: 20221027
  Serious: Yes (Life-Threatening, Hospitalization, Other)
  Sender: FDA-Public Use
  Company Number: LU-PFIZER INC-202201065179

PATIENT
  Sex: Male
  Weight: 2.08 kg

DRUGS (4)
  1. METHYLPREDNISOLONE [Suspect]
     Active Substance: METHYLPREDNISOLONE
     Dosage: 64 MG, 1X/DAY (STARTED AT 19 4/7 WEEKS OF GESTATION)
     Route: 064
  2. METHYLPREDNISOLONE [Suspect]
     Active Substance: METHYLPREDNISOLONE
     Dosage: 96 MG, 1X/DAY (FROM WEEK 25 TO 27)
     Route: 064
  3. METHYLPREDNISOLONE [Suspect]
     Active Substance: METHYLPREDNISOLONE
     Dosage: 64 MG, 1X/DAY (FROM WEEK 27 TO DELIVERY)
  4. HUMAN IMMUNOGLOBULIN G [Concomitant]
     Active Substance: HUMAN IMMUNOGLOBULIN G
     Dosage: UNK
     Route: 064

REACTIONS (6)
  - Premature baby [Unknown]
  - Adrenal insufficiency neonatal [Recovered/Resolved]
  - Galactosaemia [Unknown]
  - Hypoglycaemia neonatal [Unknown]
  - Sepsis neonatal [Unknown]
  - Maternal exposure during pregnancy [Unknown]
